FAERS Safety Report 16550805 (Version 6)
Quarter: 2020Q1

REPORT INFORMATION
  Report Type: Report from Study
  Country: US (occurrence: US)
  Receive Date: 20190710
  Receipt Date: 20200320
  Transmission Date: 20200409
  Serious: Yes (Death, Other)
  Sender: FDA-Public Use
  Company Number: PHHY2019US153922

PATIENT
  Age: 14 Year
  Sex: Female

DRUGS (3)
  1. KYMRIAH [Suspect]
     Active Substance: TISAGENLECLEUCEL
     Indication: B-CELL TYPE ACUTE LEUKAEMIA
     Dosage: UNK, ONCE/SINGLE
     Route: 041
     Dates: start: 2018
  2. FLUDARABINE [Concomitant]
     Active Substance: FLUDARABINE PHOSPHATE
     Indication: CHEMOTHERAPY
     Route: 065
  3. CYCLOPHOSPHAMIDE. [Concomitant]
     Active Substance: CYCLOPHOSPHAMIDE
     Indication: CHEMOTHERAPY
     Route: 065

REACTIONS (19)
  - Tumour lysis syndrome [Unknown]
  - Haematocrit decreased [Recovered/Resolved]
  - B-cell type acute leukaemia [Fatal]
  - Platelet count decreased [Unknown]
  - Hypogammaglobulinaemia [Unknown]
  - Neutrophil count decreased [Recovered/Resolved]
  - BK virus infection [Unknown]
  - Pneumonia [Unknown]
  - Lymphocyte count decreased [Recovered/Resolved]
  - Malignant neoplasm progression [Fatal]
  - White blood cell count decreased [Unknown]
  - Parainfluenzae virus infection [Unknown]
  - Rotavirus infection [Unknown]
  - Candida infection [Unknown]
  - Cellulitis [Unknown]
  - Haemoglobin decreased [Unknown]
  - Gastrointestinal infection [Unknown]
  - Treatment failure [Unknown]
  - Cytopenia [Unknown]
